FAERS Safety Report 5862165-4 (Version None)
Quarter: 2008Q3

REPORT INFORMATION
  Report Type: 
  Country: None (occurrence: None)
  Receive Date: 20080828
  Receipt Date: 20080826
  Transmission Date: 20090109
  Serious: Yes (Other)
  Sender: FDA-Public Use
  Company Number: DE-SP-2008-02537

PATIENT
  Age: 61 Year
  Sex: Male
  Weight: 83 kg

DRUGS (3)
  1. BCG  THERAPEUTICS [Suspect]
     Indication: TRANSITIONAL CELL CARCINOMA
     Route: 065
     Dates: start: 20080115, end: 20080721
  2. BCG  THERAPEUTICS [Suspect]
     Route: 065
     Dates: start: 20080115, end: 20080721
  3. MITOMYCIN [Concomitant]

REACTIONS (3)
  - NEUROPATHY PERIPHERAL [None]
  - RASH MACULAR [None]
  - VASCULITIS [None]
